FAERS Safety Report 11975605 (Version 2)
Quarter: 2016Q1

REPORT INFORMATION
  Report Type: Spontaneous
  Country: US (occurrence: US)
  Receive Date: 20160129
  Receipt Date: 20160316
  Transmission Date: 20160526
  Serious: No
  Sender: FDA-Public Use
  Company Number: PHEH2016US002184

PATIENT
  Age: 50 Year
  Sex: Female
  Weight: 79.37 kg

DRUGS (4)
  1. VIVELLE-DOT [Suspect]
     Active Substance: ESTRADIOL
     Indication: HOT FLUSH
  2. VIVELLE-DOT [Suspect]
     Active Substance: ESTRADIOL
     Indication: MENOPAUSE
     Dosage: 0.1 MG, TIW
     Route: 003
     Dates: start: 20121009
  3. VIVELLE-DOT [Suspect]
     Active Substance: ESTRADIOL
     Indication: INSOMNIA
  4. VIVELLE-DOT [Suspect]
     Active Substance: ESTRADIOL
     Indication: ANXIETY

REACTIONS (1)
  - Hot flush [Not Recovered/Not Resolved]

NARRATIVE: CASE EVENT DATE: 20160120
